FAERS Safety Report 24680383 (Version 1)
Quarter: 2024Q4

REPORT INFORMATION
  Report Type: Spontaneous
  Country: FR (occurrence: FR)
  Receive Date: 20241129
  Receipt Date: 20241129
  Transmission Date: 20250115
  Serious: Yes (Hospitalization)
  Sender: JOHNSON AND JOHNSON
  Company Number: None

PATIENT
  Age: 69 Year
  Sex: Female

DRUGS (4)
  1. DARATUMUMAB [Suspect]
     Active Substance: DARATUMUMAB
     Indication: Plasma cell myeloma
     Dosage: 5 CURES IN TOTAL
     Route: 048
     Dates: start: 202210, end: 202305
  2. DARATUMUMAB [Suspect]
     Active Substance: DARATUMUMAB
     Dosage: 10 CURES AU TOTAL
     Route: 048
     Dates: start: 202306, end: 20241015
  3. LENALIDOMIDE [Suspect]
     Active Substance: LENALIDOMIDE
     Indication: Plasma cell myeloma
     Dosage: 5 CURES IN TOTAL
     Route: 048
     Dates: start: 202210, end: 202305
  4. LENALIDOMIDE [Suspect]
     Active Substance: LENALIDOMIDE
     Dosage: 10 CURES AU TOTAL
     Route: 048
     Dates: start: 202306, end: 20241015

REACTIONS (1)
  - Interstitial lung disease [Recovering/Resolving]

NARRATIVE: CASE EVENT DATE: 20241001
